FAERS Safety Report 15526582 (Version 1)
Quarter: 2018Q4

REPORT INFORMATION
  Report Type: Spontaneous
  Country: US (occurrence: US)
  Receive Date: 20181018
  Receipt Date: 20181018
  Transmission Date: 20190205
  Serious: No
  Sender: FDA-Public Use
  Company Number: US-ENDO PHARMACEUTICALS INC-2018-039977

PATIENT
  Sex: Female

DRUGS (1)
  1. ZAFIRLUKAST. [Suspect]
     Active Substance: ZAFIRLUKAST
     Indication: PRODUCT USED FOR UNKNOWN INDICATION
     Dosage: 20MG AT NIGHT AND 10 DURING THE DAY
     Route: 048
     Dates: start: 201712, end: 20180626

REACTIONS (2)
  - Chest discomfort [Unknown]
  - Headache [Unknown]
